FAERS Safety Report 8988091 (Version 3)
Quarter: 2013Q4

REPORT INFORMATION
  Report Type: Spontaneous
  Country: GB (occurrence: GB)
  Receive Date: 20121227
  Receipt Date: 20131007
  Transmission Date: 20140711
  Serious: Yes (Life-Threatening, Hospitalization)
  Sender: FDA-Public Use
  Company Number: GB-BANPHARM-20120485

PATIENT
  Age: 47 Year
  Sex: Female
  Weight: 65.77 kg

DRUGS (3)
  1. IBUPROFEN UNKNOWN PRODUCT [Suspect]
     Indication: OSTEOARTHRITIS
     Dosage: 1200-1600 MG DAILY,
     Route: 048
     Dates: start: 200401, end: 20041109
  2. BENDROFLUMETHIAZIDE [Concomitant]
     Indication: HYPERTENSION
     Dosage: 2.5 MG, QD,
     Route: 048
     Dates: start: 2002, end: 20041110
  3. VITAMIN C [Concomitant]
     Dosage: 250 MG, QD,
     Route: 048
     Dates: start: 200406, end: 20041109

REACTIONS (4)
  - Haemorrhage [Not Recovered/Not Resolved]
  - Immune thrombocytopenic purpura [Not Recovered/Not Resolved]
  - Vomiting [Not Recovered/Not Resolved]
  - Overdose [Not Recovered/Not Resolved]
